FAERS Safety Report 25853193 (Version 1)
Quarter: 2025Q3

REPORT INFORMATION
  Report Type: Spontaneous
  Country: US (occurrence: None)
  Receive Date: 20250926
  Receipt Date: 20250926
  Transmission Date: 20251021
  Serious: Yes (Hospitalization)
  Sender: FDA-CTU
  Company Number: None

PATIENT
  Age: 68 Year
  Sex: Female

DRUGS (1)
  1. LENALIDOMIDE [Suspect]
     Active Substance: LENALIDOMIDE
     Indication: Hypergammaglobulinaemia benign monoclonal

REACTIONS (5)
  - Pneumonitis [None]
  - Amyloidosis [None]
  - Headache [None]
  - Vision blurred [None]
  - Nausea [None]
